FAERS Safety Report 6058597-4 (Version None)
Quarter: 2009Q1

REPORT INFORMATION
  Report Type: 
  Country: None (occurrence: None)
  Receive Date: 20090130
  Receipt Date: 20090129
  Transmission Date: 20090719
  Serious: Yes (Life-Threatening, Hospitalization, Other)
  Sender: FDA-Public Use
  Company Number: US-ASTRAZENECA-2008UW24708

PATIENT
  Age: 693 Month
  Sex: Male
  Weight: 83.5 kg

DRUGS (4)
  1. SYMBICORT [Suspect]
     Indication: ASTHMA
     Route: 055
     Dates: start: 20080601, end: 20080801
  2. ADVAIR DISKUS 100/50 [Concomitant]
     Dosage: PRIOR TO SYMBICORT
  3. ALBUTEROL SULATE [Concomitant]
  4. SINGULAIR [Concomitant]

REACTIONS (1)
  - ARRHYTHMIA [None]
